FAERS Safety Report 16811052 (Version 1)
Quarter: 2019Q3

REPORT INFORMATION
  Report Type: Spontaneous
  Country: BR (occurrence: BR)
  Receive Date: 20190916
  Receipt Date: 20190916
  Transmission Date: 20191005
  Serious: Yes (Hospitalization, Other)
  Sender: FDA-Public Use
  Company Number: BR-009507513-1909BRA004353

PATIENT
  Age: 62 Year
  Sex: Male

DRUGS (5)
  1. CARBOPLATIN. [Suspect]
     Active Substance: CARBOPLATIN
     Dosage: DOSING WAS REDUCED BY 10%, EVERY 21 DAYS
     Dates: start: 20190411, end: 2019
  2. PACLITAXEL. [Suspect]
     Active Substance: PACLITAXEL
     Dosage: DOSING WAS REDUCED BY 10%, EVERY 21 DAYS
     Dates: start: 20190411, end: 2019
  3. CARBOPLATIN. [Suspect]
     Active Substance: CARBOPLATIN
     Dosage: AREA UNDER THE CURVE (AUC) 5 EVERY 21 DAYS
     Dates: start: 20190318, end: 20190318
  4. PACLITAXEL. [Suspect]
     Active Substance: PACLITAXEL
     Dosage: 200 MILLIGRAM/SQ. METER EVERY 21 DAYS
     Dates: start: 20190318, end: 20190318
  5. KEYTRUDA [Suspect]
     Active Substance: PEMBROLIZUMAB
     Dosage: 200 MILLIGRAM EVERY 21 DAYS
     Dates: start: 20190318

REACTIONS (5)
  - Immune-mediated pneumonitis [Unknown]
  - Cough [Unknown]
  - Neurotoxicity [Unknown]
  - Oxygen saturation abnormal [Unknown]
  - Dyspnoea [Unknown]

NARRATIVE: CASE EVENT DATE: 2019
